FAERS Safety Report 22041890 (Version 2)
Quarter: 2023Q2

REPORT INFORMATION
  Report Type: Spontaneous
  Country: US (occurrence: US)
  Receive Date: 20230227
  Receipt Date: 20230410
  Transmission Date: 20230722
  Serious: Yes (Other)
  Sender: FDA-Public Use
  Company Number: US-PFIZER INC-PV202300037538

PATIENT
  Age: 46 Year
  Sex: Female

DRUGS (1)
  1. XELJANZ XR [Suspect]
     Active Substance: TOFACITINIB CITRATE
     Indication: Rheumatoid arthritis
     Dosage: 11 MG, DAILY
     Route: 048
     Dates: start: 2021

REACTIONS (5)
  - Endodontic procedure [Recovering/Resolving]
  - Respiratory syncytial virus infection [Unknown]
  - Gingivitis [Recovering/Resolving]
  - Impaired healing [Unknown]
  - Post procedural infection [Recovering/Resolving]

NARRATIVE: CASE EVENT DATE: 20221101
